FAERS Safety Report 7217900-X (Version None)
Quarter: 2011Q1

REPORT INFORMATION
  Report Type: 
  Country: None (occurrence: None)
  Receive Date: 20110110
  Receipt Date: 20101229
  Transmission Date: 20110831
  Serious: Yes (Hospitalization)
  Sender: FDA-Public Use
  Company Number: US-ELI_LILLY_AND_COMPANY-US201006004209

PATIENT
  Sex: Female

DRUGS (2)
  1. FORTEO [Suspect]
     Indication: OSTEOPOROSIS
     Dosage: 20 UG, UNKNOWN
     Dates: start: 20100519
  2. PLAVIX [Concomitant]
     Dosage: UNK, UNKNOWN

REACTIONS (2)
  - OEDEMA PERIPHERAL [None]
  - INJECTION SITE HAEMATOMA [None]
